FAERS Safety Report 8802123 (Version 1)
Quarter: 2012Q4

REPORT INFORMATION
  Report Type: 
  Country: PT (occurrence: PT)
  Receive Date: 20120921
  Receipt Date: 20120921
  Transmission Date: 20130627
  Serious: Yes (Hospitalization)
  Sender: FDA-Public Use
  Company Number: PT-ABBOTT-12P-130-0983864-00

PATIENT
  Age: 40 Year
  Sex: Male

DRUGS (2)
  1. HUMIRA [Suspect]
     Indication: CROHN^S DISEASE
     Dates: end: 2012
  2. HUMIRA [Suspect]
     Dosage: Loading dose

REACTIONS (3)
  - Intestinal fistula [Recovered/Resolved]
  - Colon operation [Recovered/Resolved]
  - Device malfunction [Recovered/Resolved]
